FAERS Safety Report 23590167 (Version 1)
Quarter: 2024Q1

REPORT INFORMATION
  Report Type: Spontaneous
  Country: US (occurrence: US)
  Receive Date: 20240304
  Receipt Date: 20240304
  Transmission Date: 20240410
  Serious: No
  Sender: FDA-Public Use
  Company Number: US-APOTEX-2024AP002362

PATIENT
  Age: 69 Year
  Sex: Male

DRUGS (1)
  1. IMIQUIMOD [Suspect]
     Active Substance: IMIQUIMOD
     Indication: Malignant melanoma in situ
     Dosage: UNK (5 TIMES WEEKLY) (2.5 MG-3.125 MG)
     Route: 061

REACTIONS (4)
  - Gait inability [Recovered/Resolved]
  - Off label use [Unknown]
  - Loss of personal independence in daily activities [Recovered/Resolved]
  - Fatigue [Recovered/Resolved]
